FAERS Safety Report 5382036-X (Version None)
Quarter: 2007Q3

REPORT INFORMATION
  Report Type: 
  Country: None (occurrence: None)
  Receive Date: 20070709
  Receipt Date: 20070702
  Transmission Date: 20080115
  Serious: Yes (Other)
  Sender: FDA-Public Use
  Company Number: US-ASTRAZENECA-2006UW22332

PATIENT
  Age: 36 Year
  Sex: Female
  Weight: 61.4 kg

DRUGS (5)
  1. SEROQUEL [Suspect]
     Indication: BIPOLAR DISORDER
     Route: 048
     Dates: start: 20020101
  2. SEROQUEL [Suspect]
     Indication: POST-TRAUMATIC STRESS DISORDER
     Route: 048
     Dates: start: 20020101
  3. SEROQUEL [Suspect]
     Indication: ANXIETY DISORDER
     Route: 048
     Dates: start: 20020101
  4. ABILIFY (ARIPIPARAZOLE) [Concomitant]
  5. ABILIFY (ARIPIPARAZOLE) [Concomitant]

REACTIONS (8)
  - BACK PAIN [None]
  - CONSTIPATION [None]
  - GALLBLADDER OPERATION [None]
  - LYMPHOEDEMA [None]
  - MULTIPLE ALLERGIES [None]
  - PANCREATITIS [None]
  - PEPTIC ULCER [None]
  - TREMOR [None]
